FAERS Safety Report 21952996 (Version 7)
Quarter: 2024Q4

REPORT INFORMATION
  Report Type: Report from Study
  Country: US (occurrence: US)
  Receive Date: 20230204
  Receipt Date: 20241007
  Transmission Date: 20250114
  Serious: No
  Sender: NOVARTIS
  Company Number: US-002147023-NVSC2023US023370

PATIENT
  Age: 70 Year
  Sex: Female

DRUGS (2)
  1. XIIDRA [Suspect]
     Active Substance: LIFITEGRAST
     Indication: Dry eye
     Dosage: 5 %, BID
     Route: 047
     Dates: start: 20230113
  2. XIIDRA [Suspect]
     Active Substance: LIFITEGRAST
     Indication: Conjunctivitis
     Dosage: 5 %, BID
     Route: 047
     Dates: start: 20230126

REACTIONS (5)
  - Product use complaint [Unknown]
  - Product container issue [Unknown]
  - Incorrect dose administered [Unknown]
  - Drug ineffective [Unknown]
  - Product packaging issue [Unknown]

NARRATIVE: CASE EVENT DATE: 20230113
